FAERS Safety Report 25047086 (Version 1)
Quarter: 2025Q1

REPORT INFORMATION
  Report Type: Spontaneous
  Country: DE (occurrence: DE)
  Receive Date: 20250306
  Receipt Date: 20250306
  Transmission Date: 20250409
  Serious: Yes (Other)
  Sender: MYLAN
  Company Number: DE-TEVA-VS-3300494

PATIENT
  Age: 56 Year
  Sex: Female

DRUGS (24)
  1. GABAPENTIN [Suspect]
     Active Substance: GABAPENTIN
     Indication: Product used for unknown indication
  2. GABAPENTIN [Suspect]
     Active Substance: GABAPENTIN
     Route: 065
  3. GABAPENTIN [Suspect]
     Active Substance: GABAPENTIN
     Route: 065
  4. GABAPENTIN [Suspect]
     Active Substance: GABAPENTIN
  5. DULOXETINE [Suspect]
     Active Substance: DULOXETINE
     Indication: Product used for unknown indication
  6. DULOXETINE [Suspect]
     Active Substance: DULOXETINE
     Route: 065
  7. DULOXETINE [Suspect]
     Active Substance: DULOXETINE
     Route: 065
  8. DULOXETINE [Suspect]
     Active Substance: DULOXETINE
  9. PREGABALIN [Suspect]
     Active Substance: PREGABALIN
     Indication: Product used for unknown indication
  10. PREGABALIN [Suspect]
     Active Substance: PREGABALIN
     Route: 065
  11. PREGABALIN [Suspect]
     Active Substance: PREGABALIN
     Route: 065
  12. PREGABALIN [Suspect]
     Active Substance: PREGABALIN
  13. TOPIRAMATE [Suspect]
     Active Substance: TOPIRAMATE
     Indication: Product used for unknown indication
  14. TOPIRAMATE [Suspect]
     Active Substance: TOPIRAMATE
     Route: 065
  15. TOPIRAMATE [Suspect]
     Active Substance: TOPIRAMATE
     Route: 065
  16. TOPIRAMATE [Suspect]
     Active Substance: TOPIRAMATE
  17. CLONAZEPAM [Suspect]
     Active Substance: CLONAZEPAM
     Indication: Product used for unknown indication
  18. CLONAZEPAM [Suspect]
     Active Substance: CLONAZEPAM
     Route: 065
  19. CLONAZEPAM [Suspect]
     Active Substance: CLONAZEPAM
     Route: 065
  20. CLONAZEPAM [Suspect]
     Active Substance: CLONAZEPAM
  21. CAPSAICIN [Suspect]
     Active Substance: CAPSAICIN
     Indication: Product used for unknown indication
     Dosage: UNK, TID
  22. CAPSAICIN [Suspect]
     Active Substance: CAPSAICIN
     Dosage: UNK, TID
     Route: 065
  23. CAPSAICIN [Suspect]
     Active Substance: CAPSAICIN
     Dosage: UNK, TID
     Route: 065
  24. CAPSAICIN [Suspect]
     Active Substance: CAPSAICIN
     Dosage: UNK, TID

REACTIONS (3)
  - Burning mouth syndrome [Unknown]
  - Magnetic resonance imaging abnormal [Unknown]
  - Off label use [Unknown]
